FAERS Safety Report 20493112 (Version 1)
Quarter: 2022Q1

REPORT INFORMATION
  Report Type: Spontaneous
  Country: US (occurrence: US)
  Receive Date: 20220220
  Receipt Date: 20220220
  Transmission Date: 20220423
  Serious: No
  Sender: FDA-Public Use
  Company Number: US-ELI_LILLY_AND_COMPANY-US202202007604

PATIENT
  Sex: Female

DRUGS (1)
  1. HUMULIN N [Suspect]
     Active Substance: INSULIN HUMAN
     Indication: Gestational diabetes
     Dosage: 62 U, DAILY
     Route: 058

REACTIONS (1)
  - Maternal exposure during pregnancy [Not Recovered/Not Resolved]
